FAERS Safety Report 4544254-X (Version None)
Quarter: 2004Q4

REPORT INFORMATION
  Report Type: 
  Country: None (occurrence: None)
  Receive Date: 20041230
  Receipt Date: 20041214
  Transmission Date: 20050328
  Serious: Yes (Life-Threatening, Hospitalization, Disabling)
  Sender: FDA-Public Use
  Company Number: 2004AP06282

PATIENT
  Age: 65 Year
  Sex: Male
  Weight: 58 kg

DRUGS (6)
  1. IRESSA [Suspect]
     Indication: NON-SMALL CELL LUNG CANCER
     Dosage: 250 MG DAILY PO
     Route: 048
     Dates: start: 20041006, end: 20041112
  2. OXAZEPAM [Concomitant]
  3. PANTOZOL [Concomitant]
  4. PREDNISOLONE [Concomitant]
  5. ZOLPIDEM TARTRATE [Concomitant]
  6. DICLOFENAC [Concomitant]

REACTIONS (3)
  - HEPATIC FUNCTION ABNORMAL [None]
  - MALAISE [None]
  - MANIA [None]
